FAERS Safety Report 12305136 (Version 1)
Quarter: 2016Q2

REPORT INFORMATION
  Report Type: Spontaneous
  Country: US (occurrence: None)
  Receive Date: 20160425
  Receipt Date: 20160425
  Transmission Date: 20160815
  Serious: Yes (Other)
  Sender: FDA-Public Use
  Company Number: None

PATIENT
  Age: 24 Year
  Sex: Male
  Weight: 87.09 kg

DRUGS (1)
  1. PALIPERIDONE ER 9MG TABLET [Suspect]
     Active Substance: PALIPERIDONE
     Indication: SCHIZOAFFECTIVE DISORDER
     Route: 048
     Dates: start: 20160407, end: 20160408

REACTIONS (1)
  - Extrapyramidal disorder [None]

NARRATIVE: CASE EVENT DATE: 20160408
